FAERS Safety Report 4362585-3 (Version None)
Quarter: 2004Q2

REPORT INFORMATION
  Report Type: 
  Country: None (occurrence: None)
  Receive Date: 20040520
  Receipt Date: 20040506
  Transmission Date: 20050107
  Serious: Yes (Hospitalization, Other)
  Sender: FDA-Public Use
  Company Number: HQWYE530220APR04

PATIENT
  Age: 76 Year
  Sex: Male
  Weight: 73 kg

DRUGS (11)
  1. MYLOTARG [Suspect]
     Indication: ACUTE MYELOID LEUKAEMIA
     Dosage: SEE IMAGE
     Route: 042
     Dates: start: 20040326, end: 20040326
  2. MYLOTARG [Suspect]
     Indication: ACUTE MYELOID LEUKAEMIA
     Dosage: SEE IMAGE
     Route: 042
     Dates: start: 20040409, end: 20040409
  3. CORDARONE [Suspect]
     Indication: ATRIAL FIBRILLATION
     Dosage: 200 MG DAILY, ORAL
     Route: 048
     Dates: start: 20040206, end: 20040414
  4. CEFTAZIDIME SODIUM [Concomitant]
  5. GENTAMICIN [Concomitant]
  6. ACYCLOVIR [Concomitant]
  7. PAXIL [Concomitant]
  8. SIMVASTATIN [Concomitant]
  9. ENALAPRIL MALEATE [Concomitant]
  10. PANTOPRAZOLE (PANTOPRAZOLE) [Concomitant]
  11. AUGMENTIN '500' [Concomitant]

REACTIONS (7)
  - BRADYCARDIA [None]
  - DIZZINESS [None]
  - FALL [None]
  - HAEMATOMA [None]
  - NAUSEA [None]
  - NECK PAIN [None]
  - PLATELET COUNT DECREASED [None]
